FAERS Safety Report 7282082-5 (Version None)
Quarter: 2011Q1

REPORT INFORMATION
  Report Type: 
  Country: None (occurrence: None)
  Receive Date: 20110208
  Receipt Date: 20110126
  Transmission Date: 20110831
  Serious: Yes (Hospitalization, Other)
  Sender: FDA-Public Use
  Company Number: CA-CELGENEUS-028-21880-11012730

PATIENT
  Sex: Male
  Weight: 80.4 kg

DRUGS (17)
  1. REVLIMID [Suspect]
     Indication: MULTIPLE MYELOMA
     Route: 048
     Dates: start: 20080710, end: 20110112
  2. NABILONE [Concomitant]
  3. SENECOT [Concomitant]
     Indication: CONSTIPATION
     Route: 048
     Dates: start: 20110114
  4. FAMOTIDINE [Concomitant]
     Indication: GASTROOESOPHAGEAL REFLUX PROPHYLAXIS
     Route: 051
     Dates: start: 20101231, end: 20110103
  5. DILTIAZEM [Concomitant]
     Indication: ATRIAL FIBRILLATION
     Route: 048
     Dates: start: 20101231
  6. PANTOPRAZOLE SODIUM [Concomitant]
     Indication: GASTROOESOPHAGEAL REFLUX PROPHYLAXIS
     Route: 048
     Dates: start: 20110103
  7. PREDNISONE [Suspect]
     Indication: MULTIPLE MYELOMA
     Route: 065
     Dates: start: 20080710
  8. HYDROMORPHONE HCL [Concomitant]
     Indication: PAIN MANAGEMENT
     Route: 048
     Dates: start: 20110117
  9. CYCLOPHOSPHAMIDE [Suspect]
     Indication: MULTIPLE MYELOMA
     Route: 065
     Dates: start: 20080710, end: 20110101
  10. NABILONE [Concomitant]
     Indication: PAIN MANAGEMENT
     Route: 048
     Dates: start: 20110113
  11. HEPARIN [Concomitant]
     Dosage: 5000 UNITS
     Route: 058
     Dates: start: 20110101
  12. AMIODARONE [Concomitant]
     Indication: ATRIAL FIBRILLATION
     Route: 051
     Dates: start: 20110102, end: 20110104
  13. HYDROMORPH CONTIN CR [Concomitant]
     Indication: PAIN MANAGEMENT
     Route: 048
     Dates: start: 20110113
  14. METOPROLOL TARTRATE [Concomitant]
     Indication: ATRIAL FIBRILLATION
     Route: 048
     Dates: start: 20110103, end: 20110103
  15. PREDNISONE [Suspect]
     Route: 048
     Dates: start: 20110107
  16. PREGABALIN [Concomitant]
     Route: 048
     Dates: start: 20110113
  17. DOCUSATE SODIUM [Concomitant]
     Indication: CONSTIPATION
     Route: 048
     Dates: start: 20110114

REACTIONS (1)
  - GASTRIC CANCER STAGE IV [None]
